FAERS Safety Report 8256095-0 (Version None)
Quarter: 2012Q2

REPORT INFORMATION
  Report Type: 
  Country: None (occurrence: None)
  Receive Date: 20120403
  Receipt Date: 20120327
  Transmission Date: 20120825
  Serious: Yes (Other)
  Sender: FDA-Public Use
  Company Number: IT-PFIZER INC-2012078378

PATIENT
  Age: 15 Year
  Sex: Female

DRUGS (3)
  1. DACTINOMYCIN [Suspect]
     Indication: RHABDOMYOSARCOMA
     Dosage: 1 MG/M2, UNK
     Route: 042
  2. DOXORUBICIN HCL [Suspect]
     Indication: RHABDOMYOSARCOMA
     Dosage: 40 MG/M2, WEEKLY ALTERNATING COURSE
     Route: 042
  3. CYCLOPHOSPHAMIDE [Suspect]
     Indication: RHABDOMYOSARCOMA
     Dosage: 500 MG/M2, WEEKLY ALTERNATING COURSE
     Route: 042

REACTIONS (1)
  - OLIGOHYDRAMNIOS [None]
